FAERS Safety Report 14295713 (Version 1)
Quarter: 2017Q4

REPORT INFORMATION
  Report Type: Spontaneous
  Country: US (occurrence: US)
  Receive Date: 20171218
  Receipt Date: 20171218
  Transmission Date: 20180321
  Serious: Yes (Death, Life-Threatening, Hospitalization, Other)
  Sender: FDA-Public Use
  Company Number: PHHY2017US185150

PATIENT
  Age: 71 Year
  Sex: Male

DRUGS (3)
  1. METHYLPREDNISOLONE. [Suspect]
     Active Substance: METHYLPREDNISOLONE
     Indication: MYOPATHY
     Dosage: 1 MG/KG, UNK
     Route: 042
  2. METHYLPREDNISOLONE. [Suspect]
     Active Substance: METHYLPREDNISOLONE
     Dosage: 1000 MG, QD
     Route: 042
  3. METHYLPREDNISOLONE. [Suspect]
     Active Substance: METHYLPREDNISOLONE
     Dosage: HIGH-DOSE
     Route: 042

REACTIONS (8)
  - Renal tubular necrosis [Unknown]
  - Bacteraemia [Unknown]
  - Septic shock [Fatal]
  - Product use in unapproved indication [Unknown]
  - Peripheral ischaemia [Unknown]
  - Fungaemia [Unknown]
  - Drug ineffective [Unknown]
  - Pneumonia [Unknown]
